FAERS Safety Report 12262183 (Version 9)
Quarter: 2016Q3

REPORT INFORMATION
  Report Type: Report from Study
  Country: IT (occurrence: IT)
  Receive Date: 20160413
  Receipt Date: 20160720
  Transmission Date: 20161109
  Serious: Yes (Life-Threatening, Hospitalization)
  Sender: FDA-Public Use
  Company Number: IT-ROCHE-1678507

PATIENT
  Age: 71 Year
  Sex: Male

DRUGS (4)
  1. XANAX [Concomitant]
     Active Substance: ALPRAZOLAM
     Indication: ANXIETY
     Dosage: 0.25 MG TABLETS^ 20 TABLETS
     Route: 048
  2. OPTIVE FUSION [Concomitant]
     Route: 047
  3. NORVASC [Concomitant]
     Active Substance: AMLODIPINE BESYLATE
     Indication: VENTRICULAR HYPERTROPHY
     Route: 048
  4. ESBRIET [Suspect]
     Active Substance: PIRFENIDONE
     Indication: IDIOPATHIC PULMONARY FIBROSIS
     Route: 048
     Dates: start: 20151208, end: 20160406

REACTIONS (17)
  - Metastases to liver [Not Recovered/Not Resolved]
  - Abdominal discomfort [Recovered/Resolved]
  - Fatigue [Not Recovered/Not Resolved]
  - Asthenia [Not Recovered/Not Resolved]
  - Haemangioma of liver [Unknown]
  - Nausea [Recovered/Resolved]
  - Musculoskeletal pain [Recovered/Resolved]
  - Ascites [Recovered/Resolved]
  - Hypertension [Recovered/Resolved with Sequelae]
  - Pain in extremity [Not Recovered/Not Resolved]
  - Peripheral swelling [Not Recovered/Not Resolved]
  - Weight decreased [Recovered/Resolved]
  - Abdominal distension [Not Recovered/Not Resolved]
  - Peritoneal neoplasm [Recovered/Resolved]
  - Somnolence [Not Recovered/Not Resolved]
  - Hepatic cancer [Not Recovered/Not Resolved]
  - Joint swelling [Not Recovered/Not Resolved]

NARRATIVE: CASE EVENT DATE: 20151211
